FAERS Safety Report 8274951-4 (Version None)
Quarter: 2012Q1

REPORT INFORMATION
  Report Type: 
  Country: None (occurrence: None)
  Receive Date: 20120309
  Receipt Date: 20111107
  Transmission Date: 20120608
  Serious: Yes (Other)
  Sender: FDA-Public Use
  Company Number: TH-2011-00471

PATIENT
  Sex: Female

DRUGS (4)
  1. EGRIFTA [Suspect]
     Indication: LIPODYSTROPHY ACQUIRED
     Dosage: 1 IN 1 D, SUBCUTANEOUS
     Route: 058
     Dates: start: 20111008, end: 20111122
  2. PREMPRO [Concomitant]
  3. CHOLESTEROL MEDICATION [Concomitant]
  4. CLONAZEPAM [Concomitant]

REACTIONS (2)
  - INJECTION SITE HAEMATOMA [None]
  - CARPAL TUNNEL SYNDROME [None]
